FAERS Safety Report 7780096-X (Version None)
Quarter: 2011Q3

REPORT INFORMATION
  Report Type: 
  Country: None (occurrence: None)
  Receive Date: 20110927
  Receipt Date: 20110920
  Transmission Date: 20111222
  Serious: Yes (Death, Other)
  Sender: FDA-Public Use
  Company Number: US-CEPHALON-2009005633

PATIENT

DRUGS (1)
  1. TRISENOX [Suspect]
     Indication: MULTIPLE MYELOMA
     Route: 042
     Dates: start: 20080331

REACTIONS (6)
  - HYPOXIA [None]
  - FEBRILE NEUTROPENIA [None]
  - PNEUMONIA [None]
  - INFECTION [None]
  - MYOCARDIAL INFARCTION [None]
  - SKIN DISORDER [None]
